FAERS Safety Report 12773056 (Version 1)
Quarter: 2016Q3

REPORT INFORMATION
  Report Type: Spontaneous
  Country: US (occurrence: US)
  Receive Date: 20160922
  Receipt Date: 20160922
  Transmission Date: 20161109
  Serious: No
  Sender: FDA-Public Use
  Company Number: US-BION-20160019

PATIENT
  Age: 65 Year
  Sex: Male
  Weight: 86.18 kg

DRUGS (1)
  1. ZYRTEC [Suspect]
     Active Substance: CETIRIZINE HYDROCHLORIDE
     Dosage: I CONSUME TWO 10 MG  LIQUID GEL CAPSULES A DAY
     Route: 048

REACTIONS (2)
  - Prescribed overdose [Unknown]
  - Drug tolerance [Unknown]
